FAERS Safety Report 22039627 (Version 1)
Quarter: 2023Q1

REPORT INFORMATION
  Report Type: Report from Study
  Country: US (occurrence: US)
  Receive Date: 20230227
  Receipt Date: 20230227
  Transmission Date: 20230418
  Serious: Yes (Other)
  Sender: FDA-Public Use
  Company Number: US-MYLANLABS-2021M1047721

PATIENT
  Sex: Female
  Weight: 72.57 kg

DRUGS (4)
  1. GLATIRAMER ACETATE [Suspect]
     Active Substance: GLATIRAMER ACETATE
     Indication: Relapsing-remitting multiple sclerosis
     Dosage: 40 MILLIGRAM, 3XW
     Route: 058
     Dates: end: 202206
  2. GLATIRAMER ACETATE [Suspect]
     Active Substance: GLATIRAMER ACETATE
     Indication: Multiple sclerosis
  3. DEVICE [Suspect]
     Active Substance: DEVICE
     Indication: Relapsing-remitting multiple sclerosis
     Dosage: UNK
     Route: 065
  4. DEVICE [Suspect]
     Active Substance: DEVICE
     Indication: Multiple sclerosis

REACTIONS (13)
  - Multiple sclerosis [Unknown]
  - Nerve injury [Unknown]
  - Band sensation [Unknown]
  - Muscle spasms [Unknown]
  - Pain in extremity [Recovered/Resolved]
  - Injection site swelling [Recovered/Resolved]
  - Injection site erythema [Recovered/Resolved]
  - Injection site pruritus [Recovered/Resolved]
  - Injection site bruising [Unknown]
  - Injection site atrophy [Unknown]
  - Device issue [Unknown]
  - Device use issue [Unknown]
  - Product administration error [Unknown]
